FAERS Safety Report 10101355 (Version 1)
Quarter: 2014Q2

REPORT INFORMATION
  Report Type: Spontaneous
  Country: MX (occurrence: None)
  Receive Date: 20140422
  Receipt Date: 20140422
  Transmission Date: 20141212
  Serious: Yes (Other)
  Sender: FDA-Public Use
  Company Number: 2014MX00384

PATIENT
  Sex: 0

DRUGS (5)
  1. GEMCITABINE [Suspect]
     Indication: PLEURAL MESOTHELIOMA MALIGNANT
     Dosage: 250 MG/M2, DAY 1 AND 8 OF 3 WEEKS CYCLE
  2. CISPLATIN [Suspect]
     Indication: PLEURAL MESOTHELIOMA MALIGNANT
     Dosage: 35 MT/M2, DAY 1 AND 8 OF 3 WEEKS CYCLE, INTRAVENOUS
     Route: 042
  3. APREPITANT (APREPITANT) [Concomitant]
  4. DEXAMETHASONE (DEXAMETHASONE) [Concomitant]
  5. ONDANSETRON (ONDANSETRON) [Concomitant]

REACTIONS (2)
  - Pneumonia [None]
  - Febrile neutropenia [None]
